FAERS Safety Report 4339138-6 (Version None)
Quarter: 2004Q1

REPORT INFORMATION
  Report Type: 
  Country: None (occurrence: None)
  Receive Date: 20040319
  Receipt Date: 20040211
  Transmission Date: 20041129
  Serious: No
  Sender: FDA-Public Use
  Company Number: US-JNJFOC-20040203349

PATIENT
  Age: 43 Year
  Sex: Female
  Weight: 54.4316 kg

DRUGS (5)
  1. ORTHO EVRA [Suspect]
     Indication: CONTRACEPTION
     Dosage: 1 DOSE (S), 3 IN 4 WEEK, TRANSDERMAL
     Route: 062
     Dates: start: 20031101
  2. SYNTHROID [Concomitant]
  3. CALCIUM [Concomitant]
  4. ZOCOR [Concomitant]
  5. ROCALTROL [Concomitant]

REACTIONS (1)
  - BLOOD CHOLESTEROL INCREASED [None]
